FAERS Safety Report 13488961 (Version 1)
Quarter: 2017Q2

REPORT INFORMATION
  Report Type: Spontaneous
  Country: US (occurrence: US)
  Receive Date: 20170426
  Receipt Date: 20170426
  Transmission Date: 20170830
  Serious: No
  Sender: FDA-Public Use
  Company Number: US-ALKERMES INC.-ALK-2017-000554

PATIENT
  Age: 30 Year
  Sex: Female

DRUGS (1)
  1. VIVITROL [Suspect]
     Active Substance: NALTREXONE
     Indication: ALCOHOLISM
     Dosage: 380 MG, QMO
     Route: 030
     Dates: start: 20170208

REACTIONS (7)
  - Sneezing [Unknown]
  - Nausea [Unknown]
  - Injection site mass [Not Recovered/Not Resolved]
  - Headache [Unknown]
  - Injection site reaction [Not Recovered/Not Resolved]
  - Throat irritation [Unknown]
  - Paranasal sinus discomfort [Unknown]

NARRATIVE: CASE EVENT DATE: 20170208
